FAERS Safety Report 9347476 (Version 3)
Quarter: 2013Q4

REPORT INFORMATION
  Report Type: Report from Study
  Country: CA (occurrence: CA)
  Receive Date: 20130614
  Receipt Date: 20131106
  Transmission Date: 20140711
  Serious: Yes (Life-Threatening, Hospitalization)
  Sender: FDA-Public Use
  Company Number: CA-ROCHE-1174641

PATIENT
  Age: 60 Year
  Sex: Female
  Weight: 100 kg

DRUGS (9)
  1. ACTEMRA [Suspect]
     Indication: RHEUMATOID ARTHRITIS
     Route: 042
     Dates: start: 20101101
  2. PLAQUENIL [Concomitant]
  3. FOLIC ACID [Concomitant]
  4. CELEBREX [Concomitant]
  5. ATENOLOL [Concomitant]
  6. MICARDIS PLUS [Concomitant]
  7. METHOTREXATE [Concomitant]
  8. METFORMIN [Concomitant]
  9. ROSUVASTATIN [Concomitant]

REACTIONS (3)
  - Myocardial infarction [Recovering/Resolving]
  - Blood pressure systolic increased [Unknown]
  - Hypertension [Unknown]
